FAERS Safety Report 8399797-8 (Version None)
Quarter: 2012Q2

REPORT INFORMATION
  Report Type: 
  Country: None (occurrence: None)
  Receive Date: 20120531
  Receipt Date: 20120518
  Transmission Date: 20120825
  Serious: Yes (Hospitalization)
  Sender: FDA-Public Use
  Company Number: AU-MYLANLABS-2012S1010705

PATIENT
  Age: 61 Year
  Sex: Female

DRUGS (1)
  1. VENLAFAXINE [Suspect]
     Dosage: 300MG DAILY
     Route: 048

REACTIONS (2)
  - ELECTROCARDIOGRAM QT PROLONGED [None]
  - STRESS CARDIOMYOPATHY [None]
